FAERS Safety Report 8395487-6 (Version None)
Quarter: 2012Q2

REPORT INFORMATION
  Report Type: 
  Country: None (occurrence: None)
  Receive Date: 20120530
  Receipt Date: 20110418
  Transmission Date: 20120825
  Serious: No
  Sender: FDA-Public Use
  Company Number: US-GLAXOSMITHKLINE-A0923371A

PATIENT
  Age: 69 Year
  Sex: Female

DRUGS (3)
  1. BENADRYL [Concomitant]
  2. VENTOLIN [Suspect]
     Indication: ASTHMA
     Dosage: 2PUFF TWICE PER DAY
     Route: 055
     Dates: start: 20100227
  3. HYDROCHLOROTHIAZIDE [Concomitant]

REACTIONS (3)
  - ORAL DISCOMFORT [None]
  - PRODUCT QUALITY ISSUE [None]
  - THROAT IRRITATION [None]
